FAERS Safety Report 12719515 (Version 2)
Quarter: 2021Q1

REPORT INFORMATION
  Report Type: Report from Study
  Country: US (occurrence: US)
  Receive Date: 20160907
  Receipt Date: 20210225
  Transmission Date: 20210419
  Serious: Yes (Other)
  Sender: FDA-Public Use
  Company Number: US-AMGEN-USASL2016116385

PATIENT
  Age: 65 Year
  Sex: Female

DRUGS (7)
  1. ENBREL [Suspect]
     Active Substance: ETANERCEPT
     Dosage: UNK
     Route: 065
  2. LEVOTHYROXINE. [Concomitant]
     Active Substance: LEVOTHYROXINE
     Dosage: .025 MG, UNK
  3. METHOTREXATE. [Concomitant]
     Active Substance: METHOTREXATE
     Dosage: UNK
     Dates: end: 2010
  4. ENBREL [Suspect]
     Active Substance: ETANERCEPT
     Indication: RHEUMATOID ARTHRITIS
     Dosage: 25 MG, 2 TIMES/WK, MONDAY AND FRIDAY
     Route: 065
     Dates: start: 200001
  5. PREDNISONE. [Concomitant]
     Active Substance: PREDNISONE
  6. ENBREL [Suspect]
     Active Substance: ETANERCEPT
     Indication: SJOGREN^S SYNDROME
     Dosage: UNK
     Route: 065
  7. INFLECTRA [Concomitant]
     Active Substance: INFLIXIMAB-DYYB
     Dosage: UNK

REACTIONS (5)
  - Nail infection [Recovered/Resolved]
  - Hepatitis C [Unknown]
  - Psoriasis [Recovering/Resolving]
  - Arthralgia [Unknown]
  - Infection [Recovered/Resolved]

NARRATIVE: CASE EVENT DATE: 2010
